FAERS Safety Report 8145378-0 (Version None)
Quarter: 2012Q1

REPORT INFORMATION
  Report Type: 
  Country: None (occurrence: None)
  Receive Date: 20120217
  Receipt Date: 20120208
  Transmission Date: 20120608
  Serious: Yes (Other)
  Sender: FDA-Public Use
  Company Number: CA-JNJFOC-20120205696

PATIENT
  Sex: Male
  Weight: 83.1 kg

DRUGS (1)
  1. REMICADE [Suspect]
     Indication: CROHN'S DISEASE
     Route: 042
     Dates: start: 20100202

REACTIONS (4)
  - EYE OEDEMA [None]
  - OCULAR HYPERAEMIA [None]
  - SKIN EXFOLIATION [None]
  - EYE DISCHARGE [None]
